FAERS Safety Report 21054642 (Version 1)
Quarter: 2022Q3

REPORT INFORMATION
  Report Type: Spontaneous
  Country: BR (occurrence: BR)
  Receive Date: 20220707
  Receipt Date: 20220707
  Transmission Date: 20221027
  Serious: Yes (Other)
  Sender: FDA-Public Use
  Company Number: BR-PFIZER INC-PV202200014224

PATIENT
  Age: 71 Year
  Sex: Female

DRUGS (7)
  1. ZYVOX [Suspect]
     Active Substance: LINEZOLID
     Indication: Urosepsis
     Dosage: UNK
     Dates: start: 20220517, end: 20220526
  2. MEROPENEM [Suspect]
     Active Substance: MEROPENEM
     Indication: Urosepsis
     Dosage: UNK
     Dates: start: 20220513
  3. POLYMYXIN [Suspect]
     Active Substance: POLYMYXIN
     Indication: Urosepsis
     Dosage: UNK
     Dates: start: 20220519, end: 20220527
  4. MICAFUNGIN SODIUM [Suspect]
     Active Substance: MICAFUNGIN SODIUM
     Indication: Urosepsis
     Dosage: UNK
     Dates: start: 20220519
  5. LEVOFLOXACIN [Suspect]
     Active Substance: LEVOFLOXACIN
     Indication: Urosepsis
     Dosage: UNK
     Dates: start: 20220522, end: 20220525
  6. LEVOFLOXACIN [Suspect]
     Active Substance: LEVOFLOXACIN
     Dosage: UNK
     Dates: start: 20220526
  7. BACTRIM [Suspect]
     Active Substance: SULFAMETHOXAZOLE\TRIMETHOPRIM
     Indication: Urosepsis
     Dosage: UNK
     Dates: start: 20220525, end: 20220526

REACTIONS (2)
  - Deafness [Unknown]
  - Ototoxicity [Unknown]

NARRATIVE: CASE EVENT DATE: 20220528
